FAERS Safety Report 9159444 (Version 1)
Quarter: 2013Q1

REPORT INFORMATION
  Report Type: Spontaneous
  Country: FR (occurrence: FR)
  Receive Date: 20130313
  Receipt Date: 20130313
  Transmission Date: 20140127
  Serious: Yes (Other)
  Sender: FDA-Public Use
  Company Number: PHHY2013FR023699

PATIENT
  Age: 65 Year
  Sex: Female

DRUGS (4)
  1. LEPONEX [Suspect]
     Dosage: 12.5 MG, QD
  2. EXELON [Concomitant]
  3. EFFEXOR [Concomitant]
  4. LEXOMIL [Concomitant]

REACTIONS (3)
  - Neutrophilia [Not Recovered/Not Resolved]
  - Leukocytosis [Not Recovered/Not Resolved]
  - Fatigue [Recovered/Resolved]
